FAERS Safety Report 8270984-2 (Version None)
Quarter: 2012Q2

REPORT INFORMATION
  Report Type: 
  Country: None (occurrence: None)
  Receive Date: 20120410
  Receipt Date: 20120329
  Transmission Date: 20120825
  Serious: Yes (Other)
  Sender: FDA-Public Use
  Company Number: DK-ELI_LILLY_AND_COMPANY-DK201204001062

PATIENT
  Sex: Male

DRUGS (3)
  1. CYMBALTA [Suspect]
     Indication: DEPRESSION
     Dosage: 30 MG, QD
     Route: 048
     Dates: start: 20090219
  2. CYMBALTA [Suspect]
     Dosage: UNK, UNKNOWN
     Route: 048
     Dates: end: 20101101
  3. CYMBALTA [Suspect]
     Dosage: 30 MG, QOD
     Route: 048
     Dates: start: 20100324, end: 20100414

REACTIONS (21)
  - CHILLS [None]
  - DRUG WITHDRAWAL SYNDROME [None]
  - INDIFFERENCE [None]
  - DRY MOUTH [None]
  - HEADACHE [None]
  - WHEEZING [None]
  - FATIGUE [None]
  - MUSCLE RIGIDITY [None]
  - LOSS OF CONSCIOUSNESS [None]
  - NUCHAL RIGIDITY [None]
  - REFLEXES ABNORMAL [None]
  - COGNITIVE DISORDER [None]
  - TONGUE SPASM [None]
  - SOMNOLENCE [None]
  - HYPERHIDROSIS [None]
  - DRY EYE [None]
  - MICTURITION URGENCY [None]
  - EMOTIONAL DISORDER [None]
  - HEMIPARESIS [None]
  - URINARY INCONTINENCE [None]
  - ACCOMMODATION DISORDER [None]
